FAERS Safety Report 4464772-2 (Version None)
Quarter: 2004Q4

REPORT INFORMATION
  Report Type: 
  Country: None (occurrence: None)
  Receive Date: 20041004
  Receipt Date: 20040809
  Transmission Date: 20050328
  Serious: No
  Sender: FDA-Public Use
  Company Number: MCN380058

PATIENT
  Age: 84 Year
  Sex: Female

DRUGS (3)
  1. COREG [Suspect]
     Dosage: 18.75MG TWICE PER DAY
     Route: 048
  2. FOSAMAX [Concomitant]
  3. UNKNOWN MEDICATION [Concomitant]

REACTIONS (1)
  - DIARRHOEA [None]
